FAERS Safety Report 4832689-7 (Version None)
Quarter: 2005Q4

REPORT INFORMATION
  Report Type: 
  Country: None (occurrence: None)
  Receive Date: 20051121
  Receipt Date: 20051111
  Transmission Date: 20060501
  Serious: Yes (Other)
  Sender: FDA-Public Use
  Company Number: PHBS2005CH16726

PATIENT
  Sex: Female

DRUGS (6)
  1. DIOVAN HCT [Suspect]
     Dosage: VALS 160 / HCT 12.5 MG/DAY
     Dates: start: 20030101
  2. NORVASC [Suspect]
     Dosage: 10 MG, QD
     Dates: start: 20050701, end: 20050801
  3. TENORMIN [Suspect]
     Dosage: 100 MG, UNK
  4. SORTIS [Suspect]
     Dosage: 10 MG, UNK
  5. EFFEXOR [Concomitant]
     Dosage: 75 MG, QD
  6. CONDROSULF [Concomitant]
     Dosage: 800 MG, QD

REACTIONS (1)
  - PSEUDO LYMPHOMA [None]
